FAERS Safety Report 17492612 (Version 3)
Quarter: 2020Q1

REPORT INFORMATION
  Report Type: Spontaneous
  Country: US (occurrence: US)
  Receive Date: 20200303
  Receipt Date: 20200313
  Transmission Date: 20200409
  Serious: Yes (Life-Threatening, Hospitalization, Other)
  Sender: FDA-Public Use
  Company Number: NVSC2020US057912

PATIENT
  Age: 41 Year
  Sex: Female
  Weight: 83 kg

DRUGS (1)
  1. CRIZANLIZUMAB [Suspect]
     Active Substance: CRIZANLIZUMAB
     Indication: SICKLE CELL DISEASE
     Dosage: 5 UG
     Route: 050
     Dates: start: 20200221, end: 20200221

REACTIONS (15)
  - Hypoxia [Unknown]
  - Blood lactate dehydrogenase [Unknown]
  - Acute chest syndrome [Recovering/Resolving]
  - Mental status changes [Recovering/Resolving]
  - Thrombocytopenia [Unknown]
  - Troponin increased [Unknown]
  - Blood bilirubin increased [Unknown]
  - Haemoglobin decreased [Unknown]
  - Multiple organ dysfunction syndrome [Unknown]
  - Pain [Recovering/Resolving]
  - Hypertension [Recovering/Resolving]
  - White blood cell count decreased [Unknown]
  - Platelet count decreased [Unknown]
  - Reticulocyte count abnormal [Unknown]
  - Fat embolism syndrome [Unknown]

NARRATIVE: CASE EVENT DATE: 20200221
